FAERS Safety Report 6914834-2 (Version None)
Quarter: 2010Q3

REPORT INFORMATION
  Report Type: 
  Country: None (occurrence: None)
  Receive Date: 20100809
  Receipt Date: 20100806
  Transmission Date: 20110219
  Serious: Yes (Hospitalization)
  Sender: FDA-Public Use
  Company Number: FR-PURDUE-GBR-2010-0006750

PATIENT
  Age: 74 Year
  Sex: Male

DRUGS (16)
  1. MORPHINE SULFATE [Suspect]
     Indication: PRODUCT USED FOR UNKNOWN INDICATION
     Dosage: 30 MG, DAILY
     Route: 048
     Dates: start: 20100416, end: 20100510
  2. AUGMENTIN '125' [Suspect]
     Indication: PRODUCT USED FOR UNKNOWN INDICATION
     Dosage: 1 G, TID
     Route: 048
     Dates: start: 20100407, end: 20100513
  3. COLCHIMAX                          /00728901/ [Suspect]
     Indication: PRODUCT USED FOR UNKNOWN INDICATION
     Dosage: UNK
     Dates: end: 20100515
  4. COLCHIMAX                          /00728901/ [Suspect]
     Dosage: 3 TABS/DAY, 2 TABS/DAY, 1TAB/DAY
     Dates: start: 20100519
  5. MORPHINE [Concomitant]
     Dosage: UNK
     Route: 048
     Dates: start: 20100511
  6. PROCTOLOG                          /01026901/ [Concomitant]
     Dosage: UNK
     Route: 061
     Dates: start: 20100416, end: 20100512
  7. INEXIUM                            /01479302/ [Concomitant]
     Dosage: 40 MG, DAILY
  8. SKENAN [Concomitant]
     Dosage: UNK
     Dates: start: 20100511
  9. SKENAN [Concomitant]
     Dosage: UNK
     Dates: end: 20100415
  10. TARDYFERON                         /00023503/ [Concomitant]
     Dosage: UNK
     Route: 048
     Dates: start: 20100328
  11. DUPHALAC [Concomitant]
     Dosage: UNK
     Dates: start: 20100416
  12. DECAPEPTYL                         /00486501/ [Concomitant]
     Dosage: UNK
     Dates: start: 20100101
  13. XALATAN [Concomitant]
     Dosage: UNK
     Route: 047
     Dates: start: 20100421
  14. ODRIK [Concomitant]
     Dosage: 0.5 MG, UNK
     Route: 048
  15. ANDROCUR [Concomitant]
     Dosage: 100 MG, DAILY
     Dates: start: 20100101
  16. XANAX [Concomitant]
     Dosage: 0.25 MG, UNK
     Route: 048
     Dates: start: 20100421

REACTIONS (2)
  - AGRANULOCYTOSIS [None]
  - NEUTROPENIA [None]
